FAERS Safety Report 16225218 (Version 2)
Quarter: 2019Q2

REPORT INFORMATION
  Report Type: Report from Study
  Country: US (occurrence: US)
  Receive Date: 20190422
  Receipt Date: 20190507
  Transmission Date: 20190711
  Serious: Yes (Hospitalization)
  Sender: FDA-Public Use
  Company Number: US-ACTELION-A-US2019-189243

PATIENT
  Age: 9 Month
  Sex: Male

DRUGS (7)
  1. NIZATIDINE. [Concomitant]
     Active Substance: NIZATIDINE
  2. REVATIO [Concomitant]
     Active Substance: SILDENAFIL CITRATE
  3. SYNAGIS [Concomitant]
     Active Substance: PALIVIZUMAB
  4. ASPIRIN. [Concomitant]
     Active Substance: ASPIRIN
     Dosage: 40 MG, QD
     Dates: start: 20190329
  5. PLAVIX [Concomitant]
     Active Substance: CLOPIDOGREL BISULFATE
     Dosage: 1.7 MG
  6. BOSENTAN TABLET 32 MG PED US [Suspect]
     Active Substance: BOSENTAN
     Indication: HYPOPLASTIC LEFT HEART SYNDROME
     Dosage: 16 MG, BID
     Route: 048
     Dates: start: 20190215
  7. EPANED [Concomitant]
     Active Substance: ENALAPRIL MALEATE
     Dosage: 0.2 ML, BID
     Route: 048
     Dates: start: 20190329

REACTIONS (1)
  - Catheterisation cardiac [Recovered/Resolved]

NARRATIVE: CASE EVENT DATE: 20190327
